FAERS Safety Report 5783429-9 (Version None)
Quarter: 2008Q2

REPORT INFORMATION
  Report Type: 
  Country: None (occurrence: None)
  Receive Date: 20080605
  Receipt Date: 20080319
  Transmission Date: 20081010
  Serious: No
  Sender: FDA-Public Use
  Company Number: A0715774A

PATIENT
  Age: 22 Year
  Sex: Female

DRUGS (1)
  1. ALLI [Suspect]

REACTIONS (3)
  - ABDOMINAL DISTENSION [None]
  - GASTROINTESTINAL SOUNDS ABNORMAL [None]
  - INFREQUENT BOWEL MOVEMENTS [None]
